FAERS Safety Report 4711821-X (Version None)
Quarter: 2005Q3

REPORT INFORMATION
  Report Type: 
  Country: None (occurrence: None)
  Receive Date: 20050708
  Receipt Date: 20050128
  Transmission Date: 20060218
  Serious: Yes (Other)
  Sender: FDA-Public Use
  Company Number: 2005021664

PATIENT
  Age: 56 Year
  Sex: Female
  Weight: 54.4316 kg

DRUGS (9)
  1. NICOTROL [Suspect]
     Indication: SMOKING CESSATION THERAPY
     Dosage: 10 SNIFFS DAILY (ONE SNIFF PER HOUR), NASAL
     Route: 045
     Dates: start: 19970901
  2. METRONIDAZOLE [Concomitant]
  3. SULFASALAZINE [Concomitant]
  4. ALPRAZOLAM [Concomitant]
  5. ATORVASTATIN CALCIUM [Concomitant]
  6. DIGOXIN [Concomitant]
  7. ZOLPIDEM TARTRATE [Concomitant]
  8. LANSOPRAZOLE [Concomitant]
  9. LOPERAMIDE HYDROCHLORIDE [Concomitant]

REACTIONS (5)
  - COLD SWEAT [None]
  - DEPENDENCE [None]
  - HEART RATE INCREASED [None]
  - MEDICATION ERROR [None]
  - REFLUX GASTRITIS [None]
